FAERS Safety Report 10109697 (Version 1)
Quarter: 2014Q2

REPORT INFORMATION
  Report Type: Spontaneous
  Country: US (occurrence: US)
  Receive Date: 20140425
  Receipt Date: 20140425
  Transmission Date: 20141212
  Serious: Yes (Hospitalization)
  Sender: FDA-Public Use
  Company Number: US-ASTRAZENECA-2014SE27166

PATIENT
  Sex: Male

DRUGS (1)
  1. CRESTOR [Suspect]
     Indication: LIPIDS ABNORMAL
     Route: 048

REACTIONS (3)
  - Blood creatinine abnormal [Unknown]
  - Urinary tract infection [Unknown]
  - White blood cell count increased [Unknown]
